FAERS Safety Report 4911731-9 (Version None)
Quarter: 2006Q1

REPORT INFORMATION
  Report Type: 
  Country: None (occurrence: None)
  Receive Date: 20060213
  Receipt Date: 20060130
  Transmission Date: 20060701
  Serious: Yes (Hospitalization)
  Sender: FDA-Public Use
  Company Number: B0409041A

PATIENT
  Age: 22 Year
  Sex: Male

DRUGS (4)
  1. LITHIUM SALT (FORMULATION UNKNOWN) (LITHIUM SALT) [Suspect]
     Dosage: 600 MG TWICE PER DAY
  2. FLUOXETINE [Suspect]
     Dosage: 20 PER DAY
  3. DEXTROMETHORPHAN HBR SYRUP (DEXTROMETHORPHAN) [Suspect]
     Dosage: SEE TEXT ORAL
     Route: 048
  4. CLONAZEPAM [Concomitant]

REACTIONS (5)
  - DRUG ABUSER [None]
  - INTENTIONAL DRUG MISUSE [None]
  - NYSTAGMUS [None]
  - SEROTONIN SYNDROME [None]
  - SINUS TACHYCARDIA [None]
